FAERS Safety Report 21188876 (Version 2)
Quarter: 2022Q3

REPORT INFORMATION
  Report Type: Other
  Country: US (occurrence: None)
  Receive Date: 20220809
  Receipt Date: 20220927
  Transmission Date: 20221027
  Serious: No
  Sender: FDA-Public Use
  Company Number: US-ROCHE-3155026

PATIENT
  Age: 56 Year
  Sex: Female
  Weight: 113.50 kg

DRUGS (3)
  1. OCREVUS [Suspect]
     Active Substance: OCRELIZUMAB
     Indication: Relapsing-remitting multiple sclerosis
     Dosage: INITIAL DOSE: 300 MG EVERY 2 WEEKS
     Route: 042
     Dates: start: 2016
  2. AVONEX [Concomitant]
     Active Substance: INTERFERON BETA-1A
  3. BACLOFEN [Concomitant]
     Active Substance: BACLOFEN

REACTIONS (5)
  - COVID-19 [Recovered/Resolved]
  - Ear infection [Not Recovered/Not Resolved]
  - Hypoaesthesia [Unknown]
  - Paraesthesia [Unknown]
  - Myalgia [Unknown]

NARRATIVE: CASE EVENT DATE: 20220726
